APPROVED DRUG PRODUCT: PLATINOL
Active Ingredient: CISPLATIN
Strength: 10MG/VIAL
Dosage Form/Route: INJECTABLE;INJECTION
Application: N018057 | Product #001
Applicant: HQ SPECIALTY PHARMA CORP
Approved: Approved Prior to Jan 1, 1982 | RLD: Yes | RS: No | Type: DISCN